FAERS Safety Report 18848657 (Version 11)
Quarter: 2024Q4

REPORT INFORMATION
  Report Type: Spontaneous
  Country: US (occurrence: US)
  Receive Date: 20210204
  Receipt Date: 20241107
  Transmission Date: 20250115
  Serious: No
  Sender: PFIZER
  Company Number: US-PFIZER INC-2021090621

PATIENT
  Age: 74 Year
  Sex: Female
  Weight: 56.145 kg

DRUGS (3)
  1. PREMPRO [Suspect]
     Active Substance: ESTROGENS, CONJUGATED\MEDROXYPROGESTERONE ACETATE
     Indication: Menopausal disorder
     Dosage: AT LEAST EVERY OTHER DAY
     Route: 048
  2. PREMPRO [Suspect]
     Active Substance: ESTROGENS, CONJUGATED\MEDROXYPROGESTERONE ACETATE
     Indication: Menopausal symptoms
     Dosage: 1 EVERY 5TH DAY
     Route: 048
  3. PREMPRO [Suspect]
     Active Substance: ESTROGENS, CONJUGATED\MEDROXYPROGESTERONE ACETATE
     Dosage: 1 DF, 1X/DAY
     Route: 048

REACTIONS (10)
  - Headache [Recovered/Resolved]
  - Dysphonia [Recovered/Resolved]
  - Nasopharyngitis [Recovered/Resolved]
  - Sinusitis [Recovered/Resolved]
  - Oropharyngeal discomfort [Recovered/Resolved]
  - Hypertension [Recovered/Resolved]
  - Tension headache [Recovered/Resolved]
  - Insomnia [Unknown]
  - Intentional product misuse [Unknown]
  - Product dose omission in error [Unknown]
